FAERS Safety Report 11533438 (Version 1)
Quarter: 2015Q3

REPORT INFORMATION
  Report Type: Spontaneous
  Country: US (occurrence: US)
  Receive Date: 20150921
  Receipt Date: 20150921
  Transmission Date: 20151125
  Serious: Yes (Other)
  Sender: FDA-Public Use
  Company Number: US-GLAXOSMITHKLINE-US2014GSK023700

PATIENT
  Age: 30 Year
  Sex: Female

DRUGS (2)
  1. ACYCLOVIR. [Suspect]
     Active Substance: ACYCLOVIR
     Indication: VIRAL INFECTION
  2. AMPICILLIN [Suspect]
     Active Substance: AMPICILLIN
     Indication: PRODUCT USED FOR UNKNOWN INDICATION

REACTIONS (9)
  - Hepatic enzyme increased [Unknown]
  - Abdominal pain upper [Unknown]
  - Nausea [Unknown]
  - Exposure during pregnancy [Unknown]
  - HELLP syndrome [Unknown]
  - Headache [Unknown]
  - Platelet count decreased [Unknown]
  - Blood pressure increased [Unknown]
  - Proteinuria [Unknown]
